FAERS Safety Report 24255911 (Version 1)
Quarter: 2024Q3

REPORT INFORMATION
  Report Type: Spontaneous
  Country: BR (occurrence: BR)
  Receive Date: 20240827
  Receipt Date: 20240827
  Transmission Date: 20241017
  Serious: Yes (Life-Threatening, Hospitalization, Other)
  Sender: PURDUE
  Company Number: BR-NAPPMUNDI-GBR-2024-0119126

PATIENT
  Age: 60 Year
  Sex: Female
  Weight: 75 kg

DRUGS (1)
  1. HYDROMORPHONE HYDROCHLORIDE [Suspect]
     Active Substance: HYDROMORPHONE HYDROCHLORIDE
     Indication: Bone pain
     Dosage: UNK
     Route: 048

REACTIONS (6)
  - Respiratory failure [Unknown]
  - Acute kidney injury [Unknown]
  - Delirium [Unknown]
  - Quadriplegia [Unknown]
  - Stress cardiomyopathy [Unknown]
  - Dysphagia [Unknown]
